FAERS Safety Report 14144911 (Version 2)
Quarter: 2018Q2

REPORT INFORMATION
  Report Type: Report from Study
  Country: US (occurrence: US)
  Receive Date: 20171031
  Receipt Date: 20180622
  Transmission Date: 20180711
  Serious: Yes (Other)
  Sender: FDA-Public Use
  Company Number: US-009507513-1710USA009986

PATIENT
  Age: 58 Year
  Sex: Female

DRUGS (3)
  1. WELLBUTRIN [Suspect]
     Active Substance: BUPROPION HYDROCHLORIDE
     Indication: DEPRESSION
  2. BELSOMRA [Suspect]
     Active Substance: SUVOREXANT
     Indication: INSOMNIA
     Dosage: 30 MG (3 TABLETS), QPM
     Route: 048
     Dates: start: 2014, end: 201710
  3. FENTANYL. [Suspect]
     Active Substance: FENTANYL

REACTIONS (7)
  - Hallucination [Unknown]
  - Depressed mood [Not Recovered/Not Resolved]
  - Sjogren^s syndrome [Unknown]
  - Abnormal behaviour [Unknown]
  - Depression [Unknown]
  - Irritability [Not Recovered/Not Resolved]
  - Overdose [Unknown]

NARRATIVE: CASE EVENT DATE: 201710
